FAERS Safety Report 8986562 (Version 1)
Quarter: 2012Q4

REPORT INFORMATION
  Report Type: 
  Country: IN (occurrence: IN)
  Receive Date: 20121226
  Receipt Date: 20121226
  Transmission Date: 20130627
  Serious: Yes (Disabling, Other)
  Sender: FDA-Public Use
  Company Number: IN-ROCHE-1174058

PATIENT
  Age: 87 Year
  Sex: Male
  Weight: 72 kg

DRUGS (5)
  1. RANIBIZUMAB [Suspect]
     Indication: AGE-RELATED MACULAR DEGENERATION
     Route: 050
     Dates: start: 20121012
  2. RANIBIZUMAB [Suspect]
     Route: 050
     Dates: start: 20121214, end: 20121214
  3. HOMATROPINE HYDROBROMIDE [Concomitant]
     Route: 065
  4. MOXIFLOXACIN HYDROCHLORIDE [Concomitant]
     Route: 065
  5. AVASTIN [Concomitant]
     Route: 065

REACTIONS (8)
  - Endophthalmitis [Not Recovered/Not Resolved]
  - Eye pain [Not Recovered/Not Resolved]
  - Ocular hyperaemia [Not Recovered/Not Resolved]
  - Eye swelling [Not Recovered/Not Resolved]
  - Eye infection [Not Recovered/Not Resolved]
  - Vision blurred [Not Recovered/Not Resolved]
  - Abnormal sensation in eye [Not Recovered/Not Resolved]
  - Headache [Not Recovered/Not Resolved]
